FAERS Safety Report 23451138 (Version 6)
Quarter: 2024Q1

REPORT INFORMATION
  Report Type: Spontaneous
  Country: IL (occurrence: IL)
  Receive Date: 20240129
  Receipt Date: 20240321
  Transmission Date: 20240409
  Serious: Yes (Other)
  Sender: FDA-Public Use
  Company Number: IL-PFIZER INC-2020154029

PATIENT
  Age: 55 Year
  Sex: Male

DRUGS (18)
  1. ELELYSO [Suspect]
     Active Substance: TALIGLUCERASE ALFA
     Indication: Gaucher^s disease
     Dosage: 2200 IU, TWICE A MONTH
     Route: 042
     Dates: start: 20160103
  2. ELELYSO [Suspect]
     Active Substance: TALIGLUCERASE ALFA
     Dosage: 2200 IU (11 VIALS/2 WEEKS)
     Route: 042
     Dates: start: 20160301, end: 20160301
  3. ELELYSO [Suspect]
     Active Substance: TALIGLUCERASE ALFA
     Dosage: 2000 IU
     Dates: start: 20201222
  4. ELELYSO [Suspect]
     Active Substance: TALIGLUCERASE ALFA
     Dosage: 2200 IU, TWICE A MONTH
     Route: 042
  5. ELELYSO [Suspect]
     Active Substance: TALIGLUCERASE ALFA
     Dosage: 1000/1200 VIALS, TWICE A MONTH
     Route: 042
     Dates: end: 20220620
  6. ELELYSO [Suspect]
     Active Substance: TALIGLUCERASE ALFA
     Dosage: 2200 IU, TWICE A MONTH
     Route: 042
  7. ELELYSO [Suspect]
     Active Substance: TALIGLUCERASE ALFA
     Dosage: 2200 IU, TWICE A MONTH
     Route: 042
  8. ELELYSO [Suspect]
     Active Substance: TALIGLUCERASE ALFA
     Dosage: 2200 IU, TWICE A MONTH
     Route: 042
  9. ELELYSO [Suspect]
     Active Substance: TALIGLUCERASE ALFA
     Dosage: 2200 IU, TWICE A MONTH
  10. ELELYSO [Suspect]
     Active Substance: TALIGLUCERASE ALFA
     Dosage: 2200 IU, TWICE A MONTH
     Route: 042
     Dates: start: 20230124
  11. ELELYSO [Suspect]
     Active Substance: TALIGLUCERASE ALFA
     Dosage: 2200 IU, TWICE A MONTH
     Route: 042
     Dates: start: 20230424
  12. ELELYSO [Suspect]
     Active Substance: TALIGLUCERASE ALFA
     Dosage: 2200 IU (11 VIALS/2 WEEKS)
     Route: 042
  13. ELELYSO [Suspect]
     Active Substance: TALIGLUCERASE ALFA
     Dosage: 2200 IU, TWICE A MONTH
     Route: 042
  14. ELELYSO [Suspect]
     Active Substance: TALIGLUCERASE ALFA
     Dosage: 2200 IU, TWICE A MONTH
     Route: 042
  15. ELELYSO [Suspect]
     Active Substance: TALIGLUCERASE ALFA
     Dosage: 2200 IU, TWICE A MONTH
     Route: 042
     Dates: start: 20240107, end: 20240107
  16. ELELYSO [Suspect]
     Active Substance: TALIGLUCERASE ALFA
     Dosage: 2200 IU, TWICE MONTHLY
     Route: 042
     Dates: start: 20240124, end: 20240124
  17. ELELYSO [Suspect]
     Active Substance: TALIGLUCERASE ALFA
     Dosage: 2200 IU, TWICE MONTHLY
     Route: 042
     Dates: start: 20240225
  18. ELELYSO [Suspect]
     Active Substance: TALIGLUCERASE ALFA
     Dosage: 2200 IU, TWICE MONTHLY
     Route: 042
     Dates: start: 20240317

REACTIONS (6)
  - Coronary artery disease [Unknown]
  - COVID-19 [Recovered/Resolved]
  - Therapeutic product effect decreased [Recovered/Resolved]
  - Pyrexia [Unknown]
  - Incorrect dose administered [Unknown]
  - Inappropriate schedule of product administration [Unknown]

NARRATIVE: CASE EVENT DATE: 20201222
